FAERS Safety Report 4366561-6 (Version None)
Quarter: 2004Q2

REPORT INFORMATION
  Report Type: 
  Country: None (occurrence: None)
  Receive Date: 20040527
  Receipt Date: 20040519
  Transmission Date: 20050107
  Serious: Yes (Hospitalization, Other)
  Sender: FDA-Public Use
  Company Number: US-MERCK-0405USA01436

PATIENT
  Age: 56 Year
  Sex: Male
  Weight: 75 kg

DRUGS (6)
  1. LORTAB [Concomitant]
     Route: 065
     Dates: end: 20040510
  2. ASPIRIN [Concomitant]
     Route: 048
  3. LOPID [Concomitant]
     Indication: BLOOD TRIGLYCERIDES INCREASED
     Route: 048
  4. GLUCOPHAGE [Concomitant]
     Indication: DIABETES MELLITUS
     Route: 048
  5. VIOXX [Suspect]
     Indication: POST PROCEDURAL PAIN
     Route: 048
     Dates: start: 20040510, end: 20040513
  6. VIOXX [Suspect]
     Indication: SURGERY
     Route: 048
     Dates: start: 20040510, end: 20040513

REACTIONS (2)
  - ARTHRALGIA [None]
  - URTICARIA [None]
